FAERS Safety Report 11703699 (Version 1)
Quarter: 2015Q4

REPORT INFORMATION
  Report Type: Spontaneous
  Country: US (occurrence: US)
  Receive Date: 20151106
  Receipt Date: 20151106
  Transmission Date: 20160304
  Serious: No
  Sender: FDA-Public Use
  Company Number: US-ASTRAZENECA-2014SE66854

PATIENT
  Age: 63 Year
  Sex: Female

DRUGS (2)
  1. BYDUREON [Suspect]
     Active Substance: EXENATIDE
     Route: 065
  2. KOMBIGLYZE XR [Concomitant]
     Active Substance: METFORMIN HYDROCHLORIDE\SAXAGLIPTIN HYDROCHLORIDE

REACTIONS (5)
  - Injection site nodule [Unknown]
  - Injection site erythema [Unknown]
  - Blood glucose increased [Not Recovered/Not Resolved]
  - Cough [Recovering/Resolving]
  - Bronchitis [Unknown]

NARRATIVE: CASE EVENT DATE: 201406
